FAERS Safety Report 9412328 (Version 1)
Quarter: 2013Q3

REPORT INFORMATION
  Report Type: Spontaneous
  Country: US (occurrence: US)
  Receive Date: 20130722
  Receipt Date: 20130722
  Transmission Date: 20140515
  Serious: No
  Sender: FDA-Public Use
  Company Number: US-BAUSCH-2012BL004039

PATIENT
  Age: 70 Year
  Sex: Female

DRUGS (1)
  1. BRIMONIDINE TARTRATE OPHTHALMIC SOLUTION 0.2% [Suspect]
     Indication: GLAUCOMA
     Dosage: 1 DROP, TWICE DAILY, OPHTHALMIC
     Route: 047
     Dates: start: 20120605

REACTIONS (2)
  - Seborrhoea [Not Recovered/Not Resolved]
  - Conjunctivitis [Not Recovered/Not Resolved]
